FAERS Safety Report 18311840 (Version 2)
Quarter: 2020Q4

REPORT INFORMATION
  Report Type: Spontaneous
  Country: DE (occurrence: DE)
  Receive Date: 20200925
  Receipt Date: 20201012
  Transmission Date: 20210113
  Serious: Yes (Other)
  Sender: FDA-Public Use
  Company Number: DE-ASTELLAS-2020US033130

PATIENT
  Age: 76 Year
  Sex: Male

DRUGS (1)
  1. XTANDI [Suspect]
     Active Substance: ENZALUTAMIDE
     Indication: PROSTATE CANCER METASTATIC
     Route: 065
     Dates: end: 20201001

REACTIONS (8)
  - Anxiety [Unknown]
  - Restlessness [Unknown]
  - Hot flush [Unknown]
  - Asthenia [Unknown]
  - Dysstasia [Unknown]
  - Feeling abnormal [Unknown]
  - Hallucination, auditory [Unknown]
  - Disturbance in attention [Unknown]

NARRATIVE: CASE EVENT DATE: 202009
